FAERS Safety Report 4570758-X (Version None)
Quarter: 2005Q1

REPORT INFORMATION
  Report Type: 
  Country: None (occurrence: None)
  Receive Date: 20050204
  Receipt Date: 20050125
  Transmission Date: 20050727
  Serious: Yes (Other)
  Sender: FDA-Public Use
  Company Number: US-ABBOTT-05P-163-0288750-00

PATIENT
  Age: 42 Year
  Sex: Male
  Weight: 70 kg

DRUGS (5)
  1. DILAUDID [Suspect]
     Indication: SEDATION
     Route: 042
     Dates: start: 20050102, end: 20050102
  2. MORPHINE SULFATE [Suspect]
     Indication: SEDATION
     Route: 042
     Dates: start: 20050102, end: 20050102
  3. LORAZEPAM [Interacting]
     Indication: SEDATION
     Route: 042
     Dates: start: 20050102, end: 20050102
  4. MIDAZOLAM HYDROCHLORIDE [Suspect]
     Indication: SEDATION
     Route: 042
     Dates: start: 20050102, end: 20050102
  5. HEPARIN [Suspect]
     Indication: SEDATION
     Route: 042
     Dates: start: 20050102, end: 20050102

REACTIONS (2)
  - DELIRIUM [None]
  - DRUG INEFFECTIVE [None]
